FAERS Safety Report 16288682 (Version 2)
Quarter: 2019Q3

REPORT INFORMATION
  Report Type: Report from Study
  Country: US (occurrence: US)
  Receive Date: 20190509
  Receipt Date: 20190704
  Transmission Date: 20191004
  Serious: No
  Sender: FDA-Public Use
  Company Number: US-009507513-1904USA010212

PATIENT
  Sex: Female

DRUGS (1)
  1. ASMANEX [Suspect]
     Active Substance: MOMETASONE FUROATE
     Dosage: 2 PUFFS IN THE MORNING, 2 PUFFS AT NIGHT; STRENGTH: 220 MICROGRAM, 120 DOSES
     Route: 055

REACTIONS (3)
  - No adverse event [Unknown]
  - Product container issue [Unknown]
  - Poor quality device used [Unknown]
